FAERS Safety Report 12304899 (Version 4)
Quarter: 2018Q2

REPORT INFORMATION
  Report Type: Spontaneous
  Country: US (occurrence: US)
  Receive Date: 20160426
  Receipt Date: 20180522
  Transmission Date: 20180711
  Serious: No
  Sender: FDA-Public Use
  Company Number: US-PFIZER INC-2016185139

PATIENT
  Age: 72 Year
  Sex: Female

DRUGS (2)
  1. IBRANCE [Suspect]
     Active Substance: PALBOCICLIB
     Dosage: 75 MG, UNK
  2. IBRANCE [Suspect]
     Active Substance: PALBOCICLIB
     Indication: METASTASES TO BONE
     Dosage: 100 MG, CYCLIC (ONCE DAILY WITH FOOD 21 DAYS ON 7 DAYS OFF)
     Route: 048

REACTIONS (2)
  - Nasopharyngitis [Unknown]
  - Product use in unapproved indication [Unknown]

NARRATIVE: CASE EVENT DATE: 20160418
